FAERS Safety Report 8983758 (Version 2)
Quarter: 2013Q1

REPORT INFORMATION
  Report Type: Report from Study
  Country: DE (occurrence: DE)
  Receive Date: 20121224
  Receipt Date: 20130111
  Transmission Date: 20140127
  Serious: Yes (Hospitalization)
  Sender: FDA-Public Use
  Company Number: DE-ROCHE-1168095

PATIENT
  Age: 61 Year
  Sex: Female
  Weight: 51.3 kg

DRUGS (15)
  1. BEVACIZUMAB [Suspect]
     Indication: RECTAL CANCER
     Dosage: LAST DOSE PRIOR TO SAE ON 21/NOV/2012. LAST DOSE ADMINISTERED: 5 MG/KG.
     Route: 042
     Dates: start: 20120725
  2. OXALIPLATIN [Suspect]
     Indication: RECTAL CANCER
     Dosage: LAST DOSE PRIOR TO SAE ON 21/NOV/2012. LAST DOSE ADMINISTERED 85 MG/M2.
     Route: 042
     Dates: start: 20120725
  3. OXALIPLATIN [Suspect]
     Dosage: DOSE REDUCED 64 MG/M2
     Route: 042
  4. IRINOTECAN [Suspect]
     Indication: RECTAL CANCER
     Dosage: LAST DOSE PRIOR TO SAE ON 21/NOV/2012. LAST DOSE ADMINISTERED 165 MG/M2.
     Route: 042
     Dates: start: 20120725
  5. IRINOTECAN [Suspect]
     Dosage: DOSE REDUCED:124 MG/M2
     Route: 042
  6. FOLINIC ACID [Suspect]
     Indication: RECTAL CANCER
     Dosage: LAST DOSE PRIOR TO SAE ON 21/NOV/2012. LAST DOSE ADMINISTERED 200 MG/M2.
     Route: 042
     Dates: start: 20120725
  7. FOLINIC ACID [Suspect]
     Dosage: DOSE REDUCED 150 MG/M2
     Route: 042
  8. 5-FLUOROURACIL [Suspect]
     Indication: RECTAL CANCER
     Dosage: LAST DOSE PRIOR TO SAE ON 21/NOV/2012. LAST DOSE ADMINISTERED 3200 MG/M2.
     Route: 042
     Dates: start: 20120725
  9. 5-FLUOROURACIL [Suspect]
     Dosage: DOSE REDUCED 2400 MG/M2
     Route: 042
  10. L-THYROXIN [Concomitant]
     Route: 048
     Dates: start: 1996
  11. RANTAC [Concomitant]
     Dosage: 1 AMP
     Route: 042
     Dates: start: 20120725
  12. SOLU DACORTIN H [Concomitant]
     Dosage: 1 AMP VIAL
     Route: 042
     Dates: start: 20120725
  13. TAVEGIL [Concomitant]
     Dosage: 1 VIAL
     Route: 042
     Dates: start: 20120725
  14. ATROPIN [Concomitant]
     Route: 058
     Dates: start: 20120725
  15. ONDANSETRON [Concomitant]
     Dosage: 1 VIAL
     Route: 042
     Dates: start: 20120725

REACTIONS (3)
  - General physical health deterioration [Recovered/Resolved]
  - Vomiting [Recovered/Resolved]
  - Nausea [Recovered/Resolved]
